FAERS Safety Report 7397298-7 (Version None)
Quarter: 2011Q2

REPORT INFORMATION
  Report Type: 
  Country: None (occurrence: None)
  Receive Date: 20110406
  Receipt Date: 20110329
  Transmission Date: 20111010
  Serious: No
  Sender: FDA-Public Use
  Company Number: US-PFIZER INC-2011071004

PATIENT
  Sex: Male

DRUGS (1)
  1. ADVIL CONGESTION RELIEF [Suspect]
     Indication: RHINORRHOEA
     Dosage: UNK

REACTIONS (2)
  - DRUG INEFFECTIVE [None]
  - PRODUCT COUNTERFEIT [None]
